FAERS Safety Report 9721580 (Version 1)
Quarter: 2013Q4

REPORT INFORMATION
  Report Type: Spontaneous
  Country: BR (occurrence: BR)
  Receive Date: 20131201
  Receipt Date: 20131201
  Transmission Date: 20140711
  Serious: Yes (Other)
  Sender: FDA-Public Use
  Company Number: BR-009507513-1311BRA011915

PATIENT
  Age: 20 Year
  Sex: Female
  Weight: 74 kg

DRUGS (1)
  1. MERCILON [Suspect]
     Indication: CONTRACEPTION
     Dosage: 150/20 MICROGRAM, QD
     Route: 048
     Dates: start: 2000

REACTIONS (5)
  - Caesarean section [Recovered/Resolved]
  - Unintended pregnancy [Recovered/Resolved]
  - Delayed delivery [Recovered/Resolved]
  - Labour pain [Recovered/Resolved]
  - Drug prescribing error [Unknown]
